FAERS Safety Report 23422806 (Version 2)
Quarter: 2024Q1

REPORT INFORMATION
  Report Type: Spontaneous
  Country: US (occurrence: US)
  Receive Date: 20240119
  Receipt Date: 20240130
  Transmission Date: 20240410
  Serious: Yes (Hospitalization, Other)
  Sender: FDA-Public Use
  Company Number: US-BRISTOL-MYERS SQUIBB COMPANY-2024-010025

PATIENT
  Age: 75 Year
  Sex: Male

DRUGS (1)
  1. LENALIDOMIDE [Suspect]
     Active Substance: LENALIDOMIDE
     Indication: Myelodysplastic syndrome
     Dosage: TAKE 1 CAPSULE WHOLE BY MOUTH WITH WATER, WITH OR WITHOUT FOOD, AT APPROXIMATELY THE SAME TIME EACH
     Route: 048

REACTIONS (5)
  - Back disorder [Unknown]
  - Cardiac failure [Unknown]
  - Sepsis [Unknown]
  - Confusional state [Recovered/Resolved]
  - Headache [Recovered/Resolved]

NARRATIVE: CASE EVENT DATE: 20240118
